FAERS Safety Report 16573367 (Version 1)
Quarter: 2019Q3

REPORT INFORMATION
  Report Type: Spontaneous
  Country: PL (occurrence: PL)
  Receive Date: 20190715
  Receipt Date: 20190715
  Transmission Date: 20191004
  Serious: Yes (Life-Threatening, Hospitalization, Other)
  Sender: FDA-Public Use
  Company Number: PL-GLAXOSMITHKLINE-PL2019125150

PATIENT
  Age: 26 Year
  Sex: Female
  Weight: 120 kg

DRUGS (4)
  1. DOPEGYT [Concomitant]
     Active Substance: METHYLDOPA
     Indication: HYPERTENSION
     Dosage: DOSE: 2 TABLETS
     Route: 065
     Dates: start: 20141024
  2. ZINACEF [Suspect]
     Active Substance: CEFUROXIME SODIUM
     Indication: C-REACTIVE PROTEIN INCREASED
     Dosage: ADMINISTERED WITH 20 ML 0.9% NACL
     Route: 042
     Dates: start: 20141024, end: 20141024
  3. DOPEGYT [Concomitant]
     Active Substance: METHYLDOPA
     Dosage: DOSE: 1 TABLET
     Route: 065
  4. ZINACEF [Suspect]
     Active Substance: CEFUROXIME SODIUM
     Indication: LEUKOCYTOSIS

REACTIONS (9)
  - Blood pressure abnormal [Unknown]
  - Cyanosis [Unknown]
  - Heart rate abnormal [Unknown]
  - Exposure during pregnancy [Unknown]
  - Dyspnoea [Unknown]
  - Conjunctival hyperaemia [Unknown]
  - Cyanosis central [Unknown]
  - Feeling hot [Unknown]
  - Acid base balance abnormal [Unknown]

NARRATIVE: CASE EVENT DATE: 20141024
